FAERS Safety Report 16729915 (Version 1)
Quarter: 2019Q3

REPORT INFORMATION
  Report Type: Spontaneous
  Country: US (occurrence: US)
  Receive Date: 20190822
  Receipt Date: 20190822
  Transmission Date: 20191005
  Serious: Yes (Other)
  Sender: FDA-Public Use
  Company Number: US-PFIZER INC-2019356811

PATIENT
  Age: 47 Year
  Sex: Female
  Weight: 95.25 kg

DRUGS (5)
  1. TROKENDI [Concomitant]
     Active Substance: TOPIRAMATE
     Dosage: 200 MG, 1X/DAY(200 MG IN THE EVENING)
  2. OMEPRAZOLE. [Concomitant]
     Active Substance: OMEPRAZOLE
     Indication: DYSPEPSIA
     Dosage: UNK
  3. VIMPAT [Concomitant]
     Active Substance: LACOSAMIDE
     Indication: SEIZURE
     Dosage: UNK
  4. RELPAX [Suspect]
     Active Substance: ELETRIPTAN HYDROBROMIDE
     Indication: MIGRAINE
     Dosage: 40 MG, UNK
     Route: 048
  5. OMEPRAZOLE. [Concomitant]
     Active Substance: OMEPRAZOLE
     Indication: GASTROOESOPHAGEAL REFLUX DISEASE

REACTIONS (4)
  - Abdominal discomfort [Unknown]
  - Diarrhoea [Unknown]
  - Recalled product administered [Unknown]
  - Meningioma [Unknown]
